FAERS Safety Report 9019575 (Version 1)
Quarter: 2013Q1

REPORT INFORMATION
  Report Type: Spontaneous
  Country: US (occurrence: US)
  Receive Date: 20130118
  Receipt Date: 20130118
  Transmission Date: 20140127
  Serious: Yes (Hospitalization)
  Sender: FDA-Public Use
  Company Number: US-EISAI INC-E7273-00345-SPO-US

PATIENT
  Age: 70 Year
  Sex: Male

DRUGS (1)
  1. TARGRETIN CAPSULES [Suspect]
     Indication: MYCOSIS FUNGOIDES
     Route: 048
     Dates: start: 2006

REACTIONS (2)
  - Pneumocystis jirovecii pneumonia [Unknown]
  - CD4 lymphocytes decreased [Unknown]
